FAERS Safety Report 15202680 (Version 1)
Quarter: 2018Q3

REPORT INFORMATION
  Report Type: Spontaneous
  Country: US (occurrence: US)
  Receive Date: 20180726
  Receipt Date: 20180726
  Transmission Date: 20181010
  Serious: Yes (Hospitalization, Other)
  Sender: FDA-Public Use
  Company Number: US-AUROBINDO-AUR-APL-2018-036661

PATIENT
  Age: 70 Year
  Sex: Male

DRUGS (1)
  1. ROPIVACAINE HYDROCHLORIDE 0.5% [Suspect]
     Active Substance: ROPIVACAINE HYDROCHLORIDE
     Indication: LOCAL ANAESTHESIA
     Route: 065

REACTIONS (3)
  - Diaphragmatic disorder [Recovered/Resolved]
  - Phrenic nerve paralysis [Recovered/Resolved]
  - Respiratory distress [Recovered/Resolved]
